FAERS Safety Report 5708737-9 (Version None)
Quarter: 2008Q2

REPORT INFORMATION
  Report Type: 
  Country: None (occurrence: None)
  Receive Date: 20080417
  Receipt Date: 20080408
  Transmission Date: 20081010
  Serious: Yes (Other)
  Sender: FDA-Public Use
  Company Number: ES-ABBOTT-08P-144-0447566-00

PATIENT

DRUGS (2)
  1. RITONAVIR [Suspect]
     Indication: HIV INFECTION
  2. ATAZANAVIR SULFATE [Suspect]
     Indication: HIV INFECTION

REACTIONS (3)
  - ASCITES [None]
  - BLOOD BILIRUBIN INCREASED [None]
  - HEPATIC ENCEPHALOPATHY [None]
